FAERS Safety Report 8095001-9 (Version None)
Quarter: 2012Q1

REPORT INFORMATION
  Report Type: 
  Country: None (occurrence: None)
  Receive Date: 20120131
  Receipt Date: 20120131
  Transmission Date: 20120608
  Serious: Yes (Hospitalization)
  Sender: FDA-Public Use
  Company Number: None

PATIENT
  Age: 19 Year
  Sex: Female

DRUGS (1)
  1. PIPERACILLIN AND TAZOBACTAM [Suspect]
     Indication: CYSTIC FIBROSIS
     Dosage: UNKNOWN
     Route: 040

REACTIONS (2)
  - TACHYCARDIA [None]
  - HAEMOLYTIC ANAEMIA [None]
